FAERS Safety Report 8575928-1 (Version None)
Quarter: 2012Q3

REPORT INFORMATION
  Report Type: 
  Country: None (occurrence: None)
  Receive Date: 20120807
  Receipt Date: 20120104
  Transmission Date: 20120928
  Serious: Yes (Hospitalization, Other)
  Sender: FDA-Public Use
  Company Number: DE-CELGENEUS-062-50794-12052594

PATIENT
  Age: 79 Year
  Sex: Female
  Weight: 65 kg

DRUGS (5)
  1. PLATELETS [Concomitant]
     Route: 065
  2. VIDAZA [Suspect]
     Route: 058
     Dates: start: 20111006, end: 20111025
  3. VIDAZA [Suspect]
  4. RED BLOOD CELLS [Concomitant]
     Route: 065
     Dates: start: 20110616
  5. VIDAZA [Suspect]
     Route: 058
     Dates: start: 20110530

REACTIONS (10)
  - PLATELET COUNT DECREASED [None]
  - TOOTH EXTRACTION [None]
  - BRONCHITIS [None]
  - VENOUS THROMBOSIS [None]
  - INJECTION SITE REACTION [None]
  - BLOOD CREATININE INCREASED [None]
  - INFECTION [None]
  - WHITE BLOOD CELL COUNT DECREASED [None]
  - GRANULOCYTE COUNT DECREASED [None]
  - HAEMOGLOBIN DECREASED [None]
